FAERS Safety Report 14799331 (Version 3)
Quarter: 2022Q2

REPORT INFORMATION
  Report Type: Other
  Country: GB (occurrence: None)
  Receive Date: 20180424
  Receipt Date: 20220612
  Transmission Date: 20220721
  Serious: Yes (Hospitalization)
  Sender: FDA-Public Use
  Company Number: GB-ROCHE-2081606

PATIENT
  Age: 52 Year
  Sex: Female

DRUGS (35)
  1. TRASTUZUMAB [Suspect]
     Active Substance: TRASTUZUMAB
     Indication: Breast cancer metastatic
     Route: 042
     Dates: start: 20150924, end: 20150924
  2. TRASTUZUMAB [Suspect]
     Active Substance: TRASTUZUMAB
     Route: 042
     Dates: start: 20151016, end: 20170324
  3. PERTUZUMAB [Suspect]
     Active Substance: PERTUZUMAB
     Indication: Breast cancer metastatic
     Route: 042
     Dates: start: 20150924, end: 20150924
  4. PERTUZUMAB [Suspect]
     Active Substance: PERTUZUMAB
     Route: 042
     Dates: start: 20151016, end: 20170324
  5. ADO-TRASTUZUMAB EMTANSINE [Suspect]
     Active Substance: ADO-TRASTUZUMAB EMTANSINE
     Indication: Breast cancer metastatic
     Route: 042
     Dates: start: 20170510, end: 20170628
  6. ATEZOLIZUMAB [Suspect]
     Active Substance: ATEZOLIZUMAB
     Indication: Breast cancer metastatic
     Route: 042
     Dates: start: 20170510, end: 20180628
  7. DOCETAXEL [Suspect]
     Active Substance: DOCETAXEL
     Indication: Breast cancer metastatic
     Route: 042
     Dates: start: 20150925, end: 20151016
  8. DOCETAXEL [Suspect]
     Active Substance: DOCETAXEL
     Route: 042
     Dates: start: 20151016, end: 20160108
  9. INSULINA HUMALOG [Concomitant]
     Dosage: 16 U
     Route: 058
     Dates: end: 20190425
  10. METFORMIN [Concomitant]
     Active Substance: METFORMIN HYDROCHLORIDE
     Dates: end: 20190425
  11. LANSOPRAZOLE [Concomitant]
     Active Substance: LANSOPRAZOLE
     Route: 048
     Dates: end: 2017
  12. LEVEMIR [Concomitant]
     Active Substance: INSULIN DETEMIR
     Dosage: 38 U
     Route: 058
     Dates: end: 20190425
  13. CITALOPRAM [Concomitant]
     Active Substance: CITALOPRAM HYDROBROMIDE
     Route: 048
     Dates: end: 2017
  14. AMITRIPTYLINE [Concomitant]
     Active Substance: AMITRIPTYLINE
     Indication: Neuropathy peripheral
     Route: 048
     Dates: start: 201608, end: 2017
  15. DOMPERIDONE [Concomitant]
     Active Substance: DOMPERIDONE
     Indication: Constipation
     Route: 048
     Dates: start: 20170705, end: 20190129
  16. LACTULOSE [Concomitant]
     Active Substance: LACTULOSE
     Indication: Constipation
     Route: 048
     Dates: start: 20170705, end: 2017
  17. MACROGOL COMP [Concomitant]
     Indication: Constipation
     Dosage: 1 OTHER
     Route: 048
     Dates: start: 20170706, end: 20190425
  18. DOCUSATE SODIUM [Concomitant]
     Active Substance: DOCUSATE SODIUM
     Indication: Constipation
     Route: 048
     Dates: start: 20170706, end: 2018
  19. SENNOSIDE B [Concomitant]
     Active Substance: SENNOSIDE B
     Indication: Constipation
     Route: 048
     Dates: start: 20170706, end: 201707
  20. RANITIDINE [Concomitant]
     Active Substance: RANITIDINE
     Indication: Constipation
     Route: 048
     Dates: start: 20170706, end: 2018
  21. HALOPERIDOL [Concomitant]
     Active Substance: HALOPERIDOL
     Indication: Constipation
     Route: 048
     Dates: start: 20170706, end: 2017
  22. OMEPRAZOLE [Concomitant]
     Active Substance: OMEPRAZOLE
     Indication: Constipation
     Route: 048
     Dates: start: 20170710, end: 20190425
  23. ONDANSETRON [Concomitant]
     Active Substance: ONDANSETRON
     Indication: Constipation
     Route: 048
     Dates: start: 20170718, end: 2017
  24. ZOPICLONE [Concomitant]
     Active Substance: ZOPICLONE
     Indication: Insomnia
     Route: 048
     Dates: start: 20170812, end: 20170822
  25. ANISEED [Concomitant]
     Indication: Gastrooesophageal reflux disease
     Route: 048
     Dates: start: 201707, end: 20190425
  26. DIAZEPAM [Concomitant]
     Active Substance: DIAZEPAM
     Indication: Anxiety
     Route: 048
     Dates: start: 20180515, end: 20190425
  27. BUDESONIDE [Concomitant]
     Active Substance: BUDESONIDE
     Route: 048
     Dates: start: 20180220, end: 20180320
  28. GABAPENTIN [Concomitant]
     Active Substance: GABAPENTIN
     Indication: Neuropathy peripheral
     Route: 048
     Dates: start: 20171219, end: 20190425
  29. DULOXETINE [Concomitant]
     Active Substance: DULOXETINE
     Indication: Anxiety
     Route: 048
     Dates: start: 20181115, end: 20190425
  30. BUTYLSCOPOLAMINE [Concomitant]
     Active Substance: BUTYLSCOPOLAMINE
     Route: 048
     Dates: start: 20171219, end: 2018
  31. GLYCERIN [Concomitant]
     Active Substance: GLYCERIN
     Indication: Constipation
     Route: 054
     Dates: start: 20180511, end: 201805
  32. DEXAMETHASONE [Concomitant]
     Active Substance: DEXAMETHASONE
     Route: 048
     Dates: start: 20181023, end: 20181028
  33. DEXAMETHASONE [Concomitant]
     Active Substance: DEXAMETHASONE
     Route: 048
     Dates: start: 20181030, end: 20190123
  34. DEXAMETHASONE [Concomitant]
     Active Substance: DEXAMETHASONE
     Route: 048
     Dates: start: 20181030, end: 20181113
  35. DEXAMETHASONE [Concomitant]
     Active Substance: DEXAMETHASONE
     Route: 048
     Dates: start: 20181228, end: 201901

REACTIONS (1)
  - Bundle branch block left [Recovered/Resolved]

NARRATIVE: CASE EVENT DATE: 20170619
